FAERS Safety Report 4616831-9 (Version None)
Quarter: 2005Q1

REPORT INFORMATION
  Report Type: 
  Country: None (occurrence: None)
  Receive Date: 20050321
  Receipt Date: 20031219
  Transmission Date: 20050727
  Serious: No
  Sender: FDA-Public Use
  Company Number: 6939

PATIENT
  Age: 76 Year
  Sex: Male

DRUGS (10)
  1. GLYCERYL TRINITRATE [Suspect]
     Indication: ANGINA PECTORIS
     Dosage: SL
     Route: 060
     Dates: start: 20031202, end: 20031203
  2. ATENOLOL [Concomitant]
  3. CLOPIDOGREL [Concomitant]
  4. ALENDRONATE SODIUM [Concomitant]
  5. LISINOPRIL [Concomitant]
  6. NICORANDIL [Concomitant]
  7. NIFEDIPINE [Concomitant]
  8. RABEPRAZOLE SODIUM [Concomitant]
  9. SIMVASTATIN [Concomitant]
  10. ROFECOXIB [Concomitant]

REACTIONS (1)
  - ORAL DISCOMFORT [None]
